FAERS Safety Report 15891014 (Version 3)
Quarter: 2019Q2

REPORT INFORMATION
  Report Type: Spontaneous
  Country: US (occurrence: US)
  Receive Date: 20190130
  Receipt Date: 20190611
  Transmission Date: 20190711
  Serious: Yes (Death, Other)
  Sender: FDA-Public Use
  Company Number: US-SA-2019SA024281

PATIENT
  Age: 65 Year
  Sex: Female
  Weight: 69.3 kg

DRUGS (11)
  1. ZYRTEC [Concomitant]
     Active Substance: CETIRIZINE HYDROCHLORIDE
  2. GABAPENTINE [Concomitant]
     Active Substance: GABAPENTIN
  3. BENZONATATE. [Concomitant]
     Active Substance: BENZONATATE
  4. ASPIRIN 81 [Concomitant]
     Active Substance: ASPIRIN
  5. MOMETASONE FUROATE. [Concomitant]
     Active Substance: MOMETASONE FUROATE
  6. PREMPRO [Concomitant]
     Active Substance: ESTROGENS, CONJUGATED\MEDROXYPROGESTERONE ACETATE
  7. PANTOPRAZOLE SODIUM. [Concomitant]
     Active Substance: PANTOPRAZOLE SODIUM
  8. TRAMADOL. [Concomitant]
     Active Substance: TRAMADOL
  9. ONDANSETRON [Concomitant]
     Active Substance: ONDANSETRON
  10. ENOXAPARIN SODIUM. [Concomitant]
     Active Substance: ENOXAPARIN SODIUM
  11. DUPIXENT [Suspect]
     Active Substance: DUPILUMAB
     Indication: DERMATITIS ATOPIC
     Dosage: 300 MG, QOW
     Route: 058
     Dates: start: 20181201

REACTIONS (3)
  - Dermatitis [Unknown]
  - Death [Fatal]
  - Bronchitis [Unknown]

NARRATIVE: CASE EVENT DATE: 20190120
